FAERS Safety Report 15862682 (Version 1)
Quarter: 2019Q1

REPORT INFORMATION
  Report Type: Spontaneous
  Country: US (occurrence: US)
  Receive Date: 20190124
  Receipt Date: 20190124
  Transmission Date: 20190417
  Serious: No
  Sender: FDA-Public Use
  Company Number: US-MYLANLABS-2019M1001978

PATIENT

DRUGS (1)
  1. SPIRONOLACTONE AND HYDROCHLOROTHIAZIDE [Suspect]
     Active Substance: HYDROCHLOROTHIAZIDE\SPIRONOLACTONE
     Indication: PRODUCT USED FOR UNKNOWN INDICATION
     Dosage: UNK

REACTIONS (6)
  - Meniscus injury [Unknown]
  - Off label use [Unknown]
  - Product physical issue [Unknown]
  - Occipital neuralgia [Unknown]
  - Arthralgia [Unknown]
  - Neuralgia [Unknown]
